FAERS Safety Report 26133102 (Version 2)
Quarter: 2025Q4

REPORT INFORMATION
  Report Type: Report from Study
  Country: CN (occurrence: CN)
  Receive Date: 20251209
  Receipt Date: 20251212
  Transmission Date: 20260117
  Serious: Yes (Death, Hospitalization, Other)
  Sender: JOHNSON AND JOHNSON
  Company Number: CN-JNJFOC-20251205791

PATIENT

DRUGS (2)
  1. REMICADE [Suspect]
     Active Substance: INFLIXIMAB
     Indication: Product used for unknown indication
     Route: 041
  2. SIMPONI [Suspect]
     Active Substance: GOLIMUMAB
     Indication: Product used for unknown indication
     Route: 058

REACTIONS (46)
  - Death [Fatal]
  - Hospitalisation [Unknown]
  - Clostridium difficile infection [Unknown]
  - Uveitis [Unknown]
  - Anaphylactic reaction [Unknown]
  - Congenital anomaly [Unknown]
  - Off label use [Unknown]
  - Abdominal pain [Unknown]
  - Diarrhoea [Unknown]
  - Frequent bowel movements [Unknown]
  - Arthralgia [Unknown]
  - Pain in extremity [Unknown]
  - Joint swelling [Unknown]
  - Arthritis [Unknown]
  - Back pain [Unknown]
  - Nasopharyngitis [Unknown]
  - Influenza [Unknown]
  - Sinusitis [Unknown]
  - Infection [Unknown]
  - Pharyngitis streptococcal [Unknown]
  - Viral infection [Unknown]
  - Dyspnoea [Unknown]
  - Cough [Unknown]
  - Oropharyngeal pain [Unknown]
  - Rhinorrhoea [Unknown]
  - Headache [Unknown]
  - Dizziness [Unknown]
  - Weight decreased [Unknown]
  - Drug level decreased [Unknown]
  - Anaemia [Unknown]
  - Dehydration [Unknown]
  - Pyrexia [Unknown]
  - Injection site pain [Unknown]
  - Injection site erythema [Unknown]
  - Fatigue [Unknown]
  - Pain [Unknown]
  - Injection site haemorrhage [Unknown]
  - Injection site swelling [Unknown]
  - Condition aggravated [Unknown]
  - General physical health deterioration [Unknown]
  - Injection site pruritus [Unknown]
  - Injection site reaction [Unknown]
  - Asthenia [Unknown]
  - Injection site warmth [Unknown]
  - Injection site urticaria [Unknown]
  - Injection site bruising [Unknown]
